FAERS Safety Report 7237528-5 (Version None)
Quarter: 2011Q1

REPORT INFORMATION
  Report Type: 
  Country: None (occurrence: None)
  Receive Date: 20110121
  Receipt Date: 20110114
  Transmission Date: 20110831
  Serious: Yes (Hospitalization)
  Sender: FDA-Public Use
  Company Number: FR-PFIZER INC-2011009473

PATIENT
  Age: 62 Year
  Sex: Male

DRUGS (2)
  1. DALACINE [Suspect]
     Dosage: 600 MG, 3X/DAY
     Route: 030
     Dates: start: 20101126, end: 20101204
  2. BACTRIM DS [Suspect]
     Dosage: 2 DF, 3X/DAY
     Route: 048
     Dates: start: 20101126, end: 20101204

REACTIONS (3)
  - HYPONATRAEMIA [None]
  - HYPERKALAEMIA [None]
  - RENAL FAILURE ACUTE [None]
